FAERS Safety Report 23039324 (Version 1)
Quarter: 2023Q4

REPORT INFORMATION
  Report Type: Spontaneous
  Country: US (occurrence: None)
  Receive Date: 20231006
  Receipt Date: 20231006
  Transmission Date: 20240110
  Serious: Yes (Death, Hospitalization)
  Sender: FDA-Public Use
  Company Number: None

PATIENT
  Age: 68 Year
  Sex: Male
  Weight: 71.5 kg

DRUGS (2)
  1. TAXOTERE [Suspect]
     Active Substance: DOCETAXEL
     Dates: end: 20230731
  2. RAMUCIRUMAB [Suspect]
     Active Substance: RAMUCIRUMAB
     Dates: end: 20230731

REACTIONS (6)
  - Fatigue [None]
  - Pain [None]
  - Hypotension [None]
  - Hypoxia [None]
  - White blood cell count increased [None]
  - Pneumonia [None]

NARRATIVE: CASE EVENT DATE: 20230818
